FAERS Safety Report 13778942 (Version 2)
Quarter: 2017Q3

REPORT INFORMATION
  Report Type: Spontaneous
  Country: US (occurrence: US)
  Receive Date: 20170721
  Receipt Date: 20170724
  Transmission Date: 20171127
  Serious: No
  Sender: FDA-Public Use
  Company Number: US-PFIZER INC-2017316983

PATIENT
  Age: 73 Year
  Sex: Female
  Weight: 86 kg

DRUGS (2)
  1. SULFASALAZINE. [Suspect]
     Active Substance: SULFASALAZINE
     Indication: ARTHRITIS
     Dosage: 1000 MG, 2X/DAY (2 TABLETS TWICE A DAY)
  2. SULFASALAZINE. [Suspect]
     Active Substance: SULFASALAZINE
     Dosage: 500 MG, 2X/DAY(ONE TABLET TWICE A DAY)

REACTIONS (1)
  - Rheumatoid factor increased [Unknown]
